FAERS Safety Report 15919073 (Version 1)
Quarter: 2020Q3

REPORT INFORMATION
  Report Type: Report from Study
  Country: FR (occurrence: FR)
  Receive Date: 20190205
  Receipt Date: 20190205
  Transmission Date: 20201104
  Serious: Yes (Hospitalization)
  Sender: FDA-Public Use
  Company Number: FR-JNJFOC-20181031790

PATIENT
  Age: 11 Year
  Sex: Female

DRUGS (4)
  1. CEFOTAXIME [Concomitant]
     Active Substance: CEFOTAXIME SODIUM
     Indication: SMALL INTESTINAL RESECTION
     Route: 065
     Dates: start: 20180720
  2. DOLIPRANE [Concomitant]
     Active Substance: ACETAMINOPHEN
     Indication: SMALL INTESTINAL RESECTION
     Route: 065
     Dates: start: 20180810
  3. RIVAROXABAN [Suspect]
     Active Substance: RIVAROXABAN
     Indication: EMBOLISM VENOUS
     Route: 048
  4. RIVAROXABAN [Suspect]
     Active Substance: RIVAROXABAN
     Route: 048

REACTIONS (1)
  - Enteritis [Recovered/Resolved]

NARRATIVE: CASE EVENT DATE: 20181014
